FAERS Safety Report 22308176 (Version 3)
Quarter: 2023Q2

REPORT INFORMATION
  Report Type: Spontaneous
  Country: US (occurrence: US)
  Receive Date: 20230511
  Receipt Date: 20230522
  Transmission Date: 20230721
  Serious: No
  Sender: FDA-Public Use
  Company Number: US-002147023-NVSC2023US104864

PATIENT
  Sex: Female

DRUGS (1)
  1. MEKINIST [Suspect]
     Active Substance: TRAMETINIB DIMETHYL SULFOXIDE
     Indication: Chylothorax
     Dosage: 0.5 MG, QD
     Route: 048
     Dates: start: 202304

REACTIONS (2)
  - Skin toxicity [Unknown]
  - Product use in unapproved indication [Unknown]
